FAERS Safety Report 13302461 (Version 1)
Quarter: 2017Q1

REPORT INFORMATION
  Report Type: Spontaneous
  Country: US (occurrence: US)
  Receive Date: 20170307
  Receipt Date: 20170307
  Transmission Date: 20170428
  Serious: No
  Sender: FDA-Public Use
  Company Number: US-SEBELA IRELAND LIMITED-2016SEB00310

PATIENT
  Sex: Male
  Weight: 82.99 kg

DRUGS (3)
  1. ANALPRAM (CVS BRAND) [Suspect]
     Active Substance: HYDROCORTISONE ACETATE\PRAMOXINE HYDROCHLORIDE
  2. ANALPRAM HC [Suspect]
     Active Substance: HYDROCORTISONE ACETATE\PRAMOXINE HYDROCHLORIDE
     Dosage: 1 DOSAGE UNITS, 3X/DAY
     Dates: start: 1986
  3. ANALPRAM HC 2.5% (GENERIC) [Suspect]
     Active Substance: HYDROCORTISONE ACETATE\PRAMOXINE HYDROCHLORIDE

REACTIONS (3)
  - Drug ineffective [Recovered/Resolved]
  - Haemorrhoids [Not Recovered/Not Resolved]
  - Incorrect route of drug administration [None]
